FAERS Safety Report 15211609 (Version 1)
Quarter: 2018Q3

REPORT INFORMATION
  Report Type: Spontaneous
  Country: US (occurrence: US)
  Receive Date: 20180702
  Receipt Date: 20180702
  Transmission Date: 20181010
  Serious: Yes (Other)
  Sender: FDA-Public Use
  Company Number: None

PATIENT
  Age: 50 Year
  Sex: Male

DRUGS (6)
  1. BUSPAR 10MG BID [Concomitant]
     Dates: start: 20180120
  2. QUETIAPINE. [Suspect]
     Active Substance: QUETIAPINE
     Indication: ANTISOCIAL PERSONALITY DISORDER
     Dosage: ?          OTHER FREQUENCY:200MG AM 500MG HS;?
     Route: 048
     Dates: start: 20180404, end: 20180510
  3. QUETIAPINE. [Suspect]
     Active Substance: QUETIAPINE
     Indication: MANIA
     Dosage: ?          OTHER FREQUENCY:200MG AM 500MG HS;?
     Route: 048
     Dates: start: 20180404, end: 20180510
  4. QUETIAPINE. [Suspect]
     Active Substance: QUETIAPINE
     Indication: POST-TRAUMATIC STRESS DISORDER
     Dosage: ?          OTHER FREQUENCY:200MG AM 500MG HS;?
     Route: 048
     Dates: start: 20180404, end: 20180510
  5. EFFEXOR XR 75 QAM [Concomitant]
     Dates: start: 20180319
  6. BENADRYL 100MG PM [Concomitant]
     Dates: start: 20171217

REACTIONS (2)
  - Dyskinesia [None]
  - Tardive dyskinesia [None]

NARRATIVE: CASE EVENT DATE: 20180509
